FAERS Safety Report 18065276 (Version 3)
Quarter: 2020Q3

REPORT INFORMATION
  Report Type: Spontaneous
  Country: GB (occurrence: GB)
  Receive Date: 20200724
  Receipt Date: 20200821
  Transmission Date: 20201103
  Serious: Yes (Other)
  Sender: FDA-Public Use
  Company Number: GB-ACCORD-192376

PATIENT
  Age: 38 Year
  Sex: Male

DRUGS (13)
  1. OLANZAPINE DR. REDDYS LABS [Concomitant]
  2. MIRTAZAPINE. [Concomitant]
     Active Substance: MIRTAZAPINE
  3. PREGABALIN MYLAN [Concomitant]
     Active Substance: PREGABALIN
  4. OMEPRAZOLE. [Concomitant]
     Active Substance: OMEPRAZOLE
  5. TEGRETOL [Concomitant]
     Active Substance: CARBAMAZEPINE
  6. PROCYCLIDINE [Concomitant]
     Active Substance: PROCYCLIDINE
  7. METFORMIN [Concomitant]
     Active Substance: METFORMIN HYDROCHLORIDE
  8. ZOPICLONE [Concomitant]
     Active Substance: ZOPICLONE
  9. CALCEOS [Concomitant]
     Active Substance: CALCIUM CARBONATE\CHOLECALCIFEROL
  10. ATORVASTATIN ACCORD [Suspect]
     Active Substance: ATORVASTATIN
     Indication: BLOOD CHOLESTEROL
     Dosage: STRENGTH 40 MG AND 20 MG(BATCH NUMBER:XJT26, EXPIRY DATE:MAR?2023)
     Route: 048
     Dates: start: 20200713, end: 20200731
  11. RISPERIDONE. [Concomitant]
     Active Substance: RISPERIDONE
  12. MONTELUKAST [Concomitant]
     Active Substance: MONTELUKAST SODIUM
  13. VENLAFAXINE/VENLAFAXINE HYDROCHLORIDE [Concomitant]
     Active Substance: VENLAFAXINE HYDROCHLORIDE

REACTIONS (7)
  - Product odour abnormal [Unknown]
  - Vomiting [Recovering/Resolving]
  - Illness [Recovering/Resolving]
  - Nausea [Unknown]
  - Diarrhoea [Not Recovered/Not Resolved]
  - Headache [Recovering/Resolving]
  - Product storage error [Unknown]

NARRATIVE: CASE EVENT DATE: 20200713
